FAERS Safety Report 4502408-2 (Version None)
Quarter: 2004Q4

REPORT INFORMATION
  Report Type: 
  Country: None (occurrence: None)
  Receive Date: 20041110
  Receipt Date: 20041028
  Transmission Date: 20050328
  Serious: Yes (Life-Threatening)
  Sender: FDA-Public Use
  Company Number: 2004JP001917

PATIENT
  Age: 46 Year
  Sex: Male

DRUGS (4)
  1. PROGRAFT (TACROLIMUS) FORMULATION [Suspect]
     Indication: RENAL TRANSPLANT
     Dates: start: 20030318, end: 20030401
  2. PREDNISOLONE [Concomitant]
  3. BASILIXIMAB (BASILIXIMAB) [Concomitant]
  4. MYCOPHENOLATE MOFETIL (MYCOPHENOLATE MOFETIL) CAPSULE [Concomitant]

REACTIONS (11)
  - ANOREXIA [None]
  - BLOOD CREATININE INCREASED [None]
  - BOWEL SOUNDS ABNORMAL [None]
  - GASTROENTERITIS STAPHYLOCOCCAL [None]
  - GASTROINTESTINAL HAEMORRHAGE [None]
  - GASTROINTESTINAL NECROSIS [None]
  - HAEMODIALYSIS [None]
  - HYPOVOLAEMIA [None]
  - INTESTINAL PERFORATION [None]
  - INTESTINAL ULCER [None]
  - POST PROCEDURAL COMPLICATION [None]
